FAERS Safety Report 5035429-4 (Version None)
Quarter: 2006Q2

REPORT INFORMATION
  Report Type: 
  Country: None (occurrence: None)
  Receive Date: 20060622
  Receipt Date: 20060608
  Transmission Date: 20061013
  Serious: Yes (Other)
  Sender: FDA-Public Use
  Company Number: 2006RR-02611

PATIENT
  Age: 83 Year
  Sex: Female

DRUGS (2)
  1. CYCLOPENTOLATE HYDROCHLORIDE [Suspect]
     Indication: ULCERATIVE KERATITIS
     Dosage: OPTHALMIC
     Route: 047
  2. OFLOXACIN [Suspect]
     Indication: ULCERATIVE KERATITIS
     Dosage: OPTHALMIC
     Route: 047

REACTIONS (2)
  - CORNEAL DEPOSITS [None]
  - DRUG INTERACTION [None]
